FAERS Safety Report 5873589-3 (Version None)
Quarter: 2008Q3

REPORT INFORMATION
  Report Type: 
  Country: None (occurrence: None)
  Receive Date: 20080908
  Receipt Date: 20080128
  Transmission Date: 20090109
  Serious: Yes (Death)
  Sender: FDA-Public Use
  Company Number: NL-ROCHE-583946

PATIENT
  Age: 20 Year
  Sex: Female

DRUGS (3)
  1. TAMIFLU [Suspect]
     Route: 065
  2. RELENZA [Concomitant]
  3. AMANTADINE HCL [Concomitant]

REACTIONS (2)
  - ACUTE RESPIRATORY DISTRESS SYNDROME [None]
  - PATHOGEN RESISTANCE [None]
